FAERS Safety Report 5723936-8 (Version None)
Quarter: 2008Q2

REPORT INFORMATION
  Report Type: 
  Country: None (occurrence: None)
  Receive Date: 20080428
  Receipt Date: 20080418
  Transmission Date: 20081010
  Serious: Yes (Other)
  Sender: FDA-Public Use
  Company Number: SIM20080006

PATIENT
  Age: 75 Year
  Sex: Female
  Weight: 64.4108 kg

DRUGS (2)
  1. SIMVASTATIN [Suspect]
     Indication: HYPERCHOLESTEROLAEMIA
     Dosage: 20-5 MG DAILY PO
     Route: 048
     Dates: start: 20071128, end: 20071219
  2. MULTI-VITAMIN [Concomitant]

REACTIONS (9)
  - ARTHRALGIA [None]
  - FAECES DISCOLOURED [None]
  - FATIGUE [None]
  - FOCAL NODULAR HYPERPLASIA [None]
  - HEPATOTOXICITY [None]
  - MUSCULAR WEAKNESS [None]
  - NIGHT SWEATS [None]
  - ORAL INTAKE REDUCED [None]
  - WEIGHT DECREASED [None]
